FAERS Safety Report 10955564 (Version 2)
Quarter: 2015Q2

REPORT INFORMATION
  Report Type: Spontaneous
  Country: US (occurrence: US)
  Receive Date: 20150326
  Receipt Date: 20150521
  Transmission Date: 20150821
  Serious: Yes (Hospitalization)
  Sender: FDA-Public Use
  Company Number: US-INCYTE CORPORATION-2015IN001203

PATIENT
  Sex: Male
  Weight: 72.56 kg

DRUGS (1)
  1. JAKAFI [Suspect]
     Active Substance: RUXOLITINIB
     Indication: MYELOFIBROSIS
     Dosage: 30 MG, QD
     Route: 048
     Dates: start: 20140311

REACTIONS (4)
  - Renal failure [Unknown]
  - Respiratory distress [Unknown]
  - Pulmonary renal syndrome [Unknown]
  - Vasculitis [Unknown]
